FAERS Safety Report 4714991-2 (Version None)
Quarter: 2005Q3

REPORT INFORMATION
  Report Type: 
  Country: None (occurrence: None)
  Receive Date: 20050715
  Receipt Date: 20050630
  Transmission Date: 20060218
  Serious: Yes (Hospitalization)
  Sender: FDA-Public Use
  Company Number: JM-BOEHRINGER INGELHEIM PHARMACEUTICALS, INC.-2005-DE-02515GD

PATIENT
  Age: 10 Month
  Sex: Male

DRUGS (6)
  1. NEVIRAPINE [Suspect]
     Indication: HIV INFECTION
     Dosage: 270 MG/ME2
  2. NEVIRAPINE [Suspect]
     Indication: ACQUIRED IMMUNODEFICIENCY SYNDROME
  3. ZIDOVUDINE [Concomitant]
     Indication: HIV INFECTION
     Dosage: 360 MG/ME2
  4. ZIDOVUDINE [Concomitant]
     Indication: ACQUIRED IMMUNODEFICIENCY SYNDROME
  5. LAMIVUDINE [Concomitant]
     Indication: HIV INFECTION
     Dosage: 8 MG/KG
  6. LAMIVUDINE [Concomitant]
     Indication: ACQUIRED IMMUNODEFICIENCY SYNDROME

REACTIONS (6)
  - DRUG ERUPTION [None]
  - GENERALISED OEDEMA [None]
  - PYREXIA [None]
  - SKIN EXFOLIATION [None]
  - SKIN LESION [None]
  - URTICARIA [None]
